FAERS Safety Report 25846931 (Version 2)
Quarter: 2025Q4

REPORT INFORMATION
  Report Type: Spontaneous
  Country: JP (occurrence: JP)
  Receive Date: 20250925
  Receipt Date: 20251003
  Transmission Date: 20260117
  Serious: Yes (Other)
  Sender: UCB
  Company Number: JP-UCBJ-CD202512329UCBPHAPROD

PATIENT
  Age: 2 Decade
  Sex: Female

DRUGS (9)
  1. BRIVIACT [Suspect]
     Active Substance: BRIVARACETAM
     Indication: Frontal lobe epilepsy
     Dosage: 25 MILLIGRAM, 2X/DAY (BID)
     Route: 048
     Dates: start: 20250114
  2. BRIVIACT [Suspect]
     Active Substance: BRIVARACETAM
     Dosage: 100 MILLIGRAM
     Route: 048
  3. BRIVIACT [Suspect]
     Active Substance: BRIVARACETAM
     Dosage: 150 MILLIGRAM
     Route: 048
  4. BRIVIACT [Suspect]
     Active Substance: BRIVARACETAM
     Dosage: 200 MILLIGRAM
     Route: 048
  5. CARBAMAZEPINE [Concomitant]
     Active Substance: CARBAMAZEPINE
     Indication: Frontal lobe epilepsy
     Dosage: 200 MILLIGRAM, 2X/DAY (BID)
     Route: 048
  6. CARBAMAZEPINE [Concomitant]
     Active Substance: CARBAMAZEPINE
     Dosage: 200 MILLIGRAM
     Route: 048
  7. CARBAMAZEPINE [Concomitant]
     Active Substance: CARBAMAZEPINE
     Dosage: 400 MILLIGRAM
     Route: 048
  8. CARBAMAZEPINE [Concomitant]
     Active Substance: CARBAMAZEPINE
     Dosage: 200 MILLIGRAM
     Route: 048
  9. CARBAMAZEPINE [Concomitant]
     Active Substance: CARBAMAZEPINE
     Dosage: 400 MILLIGRAM

REACTIONS (2)
  - Epilepsy [Recovered/Resolved]
  - Nasopharyngitis [Recovered/Resolved]

NARRATIVE: CASE EVENT DATE: 20250128
